FAERS Safety Report 24893206 (Version 1)
Quarter: 2025Q1

REPORT INFORMATION
  Report Type: Spontaneous
  Country: FR (occurrence: FR)
  Receive Date: 20250128
  Receipt Date: 20250128
  Transmission Date: 20250408
  Serious: Yes (Hospitalization, Other)
  Sender: ALEXION PHARMACEUTICALS
  Company Number: FR-ASTRAZENECA-202501GLO022116FR

PATIENT
  Age: 77 Year

DRUGS (13)
  1. OMEPRAZOLE [Suspect]
     Active Substance: OMEPRAZOLE
     Indication: Calcium deficiency
  2. ALFACALCIDOL [Suspect]
     Active Substance: ALFACALCIDOL
     Indication: Calcium deficiency
  3. PREDNISONE [Suspect]
     Active Substance: PREDNISONE
     Indication: Calcium deficiency
  4. CHOLECALCIFEROL [Suspect]
     Active Substance: CHOLECALCIFEROL
     Indication: Hypovitaminosis
  5. CALCIUM ACETATE [Suspect]
     Active Substance: CALCIUM ACETATE
     Indication: Calcium deficiency
  6. BISOPROLOL [Concomitant]
     Active Substance: BISOPROLOL
  7. LEVOTHYROXINE [Concomitant]
     Active Substance: LEVOTHYROXINE
  8. AMLODIPINE [Concomitant]
     Active Substance: AMLODIPINE BESYLATE
  9. FUROSEMIDE [Concomitant]
     Active Substance: FUROSEMIDE
  10. FERROUS SULFATE [Concomitant]
     Active Substance: FERROUS SULFATE
  11. ARANESP [Concomitant]
     Active Substance: DARBEPOETIN ALFA
  12. SODIUM BICARBONATE [Concomitant]
     Active Substance: SODIUM BICARBONATE
  13. VALSARTAN [Concomitant]
     Active Substance: VALSARTAN

REACTIONS (7)
  - Azotaemia [Unknown]
  - Aortic valve incompetence [Unknown]
  - Hypercalcaemia [Recovered/Resolved]
  - Drug interaction [Recovered/Resolved]
  - General physical health deterioration [Unknown]
  - Clinomania [Unknown]
  - Hypovolaemia [Unknown]
